FAERS Safety Report 13402280 (Version 1)
Quarter: 2017Q2

REPORT INFORMATION
  Report Type: Report from Study
  Country: US (occurrence: KR)
  Receive Date: 20170404
  Receipt Date: 20170404
  Transmission Date: 20170830
  Serious: Yes (Hospitalization)
  Sender: FDA-Public Use
  Company Number: US-SUNOVION-2017SUN001179

PATIENT
  Age: 78 Year
  Sex: Male
  Weight: 53 kg

DRUGS (3)
  1. INDACATEROL AND GLYCOPYRROLATE [Suspect]
     Active Substance: GLYCOPYRROLATE\INDACATEROL MALEATE
     Indication: CHRONIC OBSTRUCTIVE PULMONARY DISEASE
     Dosage: 1 DF, QD
     Route: 055
     Dates: start: 20161202
  2. SURFOLASE [Concomitant]
     Dosage: UNK
     Dates: start: 20101207
  3. ASIMA [Concomitant]
     Dosage: UNK
     Dates: start: 20101207

REACTIONS (5)
  - Atrial flutter [Recovered/Resolved]
  - Dyspnoea [Unknown]
  - Hypertension [Recovered/Resolved]
  - Cardiomyopathy [Recovered/Resolved]
  - Tachycardia [Unknown]

NARRATIVE: CASE EVENT DATE: 20170201
